FAERS Safety Report 7699220-2 (Version None)
Quarter: 2011Q3

REPORT INFORMATION
  Report Type: 
  Country: None (occurrence: None)
  Receive Date: 20110818
  Receipt Date: 20110818
  Transmission Date: 20111222
  Serious: No
  Sender: FDA-Public Use
  Company Number: None

PATIENT
  Age: 57 Year
  Sex: Male

DRUGS (2)
  1. CRESTOR [Suspect]
     Dates: start: 20070830, end: 20100429
  2. METFORMIN HCL [Suspect]
     Dates: start: 20050329, end: 20100520

REACTIONS (10)
  - HEPATIC FIBROSIS [None]
  - HEPATIC CIRRHOSIS [None]
  - WEIGHT DECREASED [None]
  - GLYCOSYLATED HAEMOGLOBIN INCREASED [None]
  - ECONOMIC PROBLEM [None]
  - DIABETES MELLITUS INADEQUATE CONTROL [None]
  - JAUNDICE [None]
  - CHOLESTASIS [None]
  - ASCITES [None]
  - LIVER INJURY [None]
